FAERS Safety Report 10008595 (Version 1)
Quarter: 2014Q1

REPORT INFORMATION
  Report Type: Spontaneous
  Country: US (occurrence: US)
  Receive Date: 20140312
  Receipt Date: 20140312
  Transmission Date: 20141002
  Serious: No
  Sender: FDA-Public Use
  Company Number: US-INCYTE CORPORATION-2012IN000128

PATIENT
  Age: 63 Year
  Sex: Female

DRUGS (4)
  1. JAKAFI [Suspect]
     Indication: MYELOFIBROSIS
     Dosage: 20 MG, BID
     Route: 048
     Dates: start: 20120123, end: 201201
  2. JAKAFI [Suspect]
     Dosage: 10 MG, BID
     Route: 048
     Dates: start: 201201
  3. METOPROLOL [Concomitant]
     Dosage: 100 MG, BID
     Route: 048
  4. LISINOPRIL [Concomitant]
     Dosage: 20 MG, BID
     Route: 048

REACTIONS (1)
  - Rash [Unknown]
